FAERS Safety Report 16913390 (Version 1)
Quarter: 2019Q4

REPORT INFORMATION
  Report Type: Spontaneous
  Country: US (occurrence: US)
  Receive Date: 20191014
  Receipt Date: 20191014
  Transmission Date: 20200122
  Serious: No
  Sender: FDA-Public Use
  Company Number: US-GLENMARK PHARMACEUTICALS-2019GMK042555

PATIENT

DRUGS (1)
  1. ALCLOMETASONE DIPROPIONATE. [Suspect]
     Active Substance: ALCLOMETASONE DIPROPIONATE
     Indication: LIP DRY
     Dosage: UNK, BID
     Route: 061
     Dates: start: 20190805

REACTIONS (3)
  - Product prescribing error [Unknown]
  - No adverse event [Unknown]
  - Product use in unapproved indication [Unknown]
